FAERS Safety Report 8426960-X (Version None)
Quarter: 2012Q2

REPORT INFORMATION
  Report Type: 
  Country: None (occurrence: None)
  Receive Date: 20120611
  Receipt Date: 20120601
  Transmission Date: 20120825
  Serious: Yes (Other)
  Sender: FDA-Public Use
  Company Number: US-JNJFOC-20120517629

PATIENT
  Sex: Female
  Weight: 74.84 kg

DRUGS (6)
  1. XARELTO [Suspect]
     Indication: ATRIAL FIBRILLATION
     Route: 048
     Dates: start: 20120201
  2. LEVOTHYROXINE SODIUM [Concomitant]
     Indication: HYPOTHYROIDISM
     Route: 048
     Dates: start: 20060101
  3. LOSTATIN [Concomitant]
     Indication: HYPERTENSION
     Route: 048
     Dates: start: 20100101
  4. POTASSIUM [Concomitant]
     Indication: HYPERTENSION
     Route: 048
     Dates: start: 20070101
  5. METOPROLOL TARTRATE [Concomitant]
     Indication: HYPERTENSION
     Route: 048
     Dates: start: 20120101
  6. NIMODIPINE [Concomitant]
     Indication: HYPERTENSION
     Route: 048
     Dates: start: 20080101

REACTIONS (2)
  - ORAL MUCOSAL BLISTERING [None]
  - ORAL MUCOSAL ERUPTION [None]
